FAERS Safety Report 16066385 (Version 1)
Quarter: 2019Q1

REPORT INFORMATION
  Report Type: Spontaneous
  Country: US (occurrence: US)
  Receive Date: 20190313
  Receipt Date: 20190313
  Transmission Date: 20190418
  Serious: No
  Sender: FDA-Public Use
  Company Number: US-CELGENEUS-USA-20190303125

PATIENT
  Sex: Female

DRUGS (1)
  1. OTEZLA [Suspect]
     Active Substance: APREMILAST
     Indication: PRODUCT USED FOR UNKNOWN INDICATION
     Dosage: 20 MILLIGRAM (STARTER PACK)
     Route: 048
     Dates: start: 20190306, end: 20190307

REACTIONS (2)
  - Paraesthesia oral [Recovering/Resolving]
  - Tongue disorder [Recovering/Resolving]

NARRATIVE: CASE EVENT DATE: 20190306
